FAERS Safety Report 6031879-8 (Version None)
Quarter: 2009Q1

REPORT INFORMATION
  Report Type: 
  Country: None (occurrence: None)
  Receive Date: 20090108
  Receipt Date: 20081208
  Transmission Date: 20090719
  Serious: Yes (Other)
  Sender: FDA-Public Use
  Company Number: US-PFIZER INC-2008092964

PATIENT
  Sex: Male
  Weight: 128.35 kg

DRUGS (3)
  1. NEURONTIN [Suspect]
     Indication: PAIN
     Dates: start: 20020101
  2. LYRICA [Suspect]
     Indication: PAIN
     Dosage: 25 MG, 2X/DAY
     Route: 048
     Dates: start: 20081001, end: 20081001
  3. DIAZEPAM [Concomitant]

REACTIONS (15)
  - ABNORMAL BEHAVIOUR [None]
  - ABNORMAL DREAMS [None]
  - ANGER [None]
  - ANXIETY [None]
  - CRYING [None]
  - DEPRESSION [None]
  - DISTURBANCE IN ATTENTION [None]
  - DRUG INEFFECTIVE [None]
  - EAR PAIN [None]
  - FEELING JITTERY [None]
  - NERVOUSNESS [None]
  - PAIN IN JAW [None]
  - PARANOIA [None]
  - VISION BLURRED [None]
  - VISUAL IMPAIRMENT [None]
